FAERS Safety Report 10943231 (Version 2)
Quarter: 2015Q2

REPORT INFORMATION
  Report Type: Spontaneous
  Country: US (occurrence: US)
  Receive Date: 20150322
  Receipt Date: 20150525
  Transmission Date: 20150821
  Serious: No
  Sender: FDA-Public Use
  Company Number: US-JNJFOC-20140606477

PATIENT
  Sex: Female

DRUGS (1)
  1. RISPERDAL CONSTA [Suspect]
     Active Substance: RISPERIDONE
     Indication: ANTICOAGULANT THERAPY
     Route: 030

REACTIONS (6)
  - Drug administered at inappropriate site [Unknown]
  - Skin disorder [Unknown]
  - Wrong drug administered [Unknown]
  - Product use issue [Unknown]
  - Adverse event [Unknown]
  - Dyspnoea [Unknown]
